FAERS Safety Report 6905187-4 (Version None)
Quarter: 2010Q3

REPORT INFORMATION
  Report Type: 
  Country: None (occurrence: None)
  Receive Date: 20100804
  Receipt Date: 20100720
  Transmission Date: 20110219
  Serious: Yes (Hospitalization)
  Sender: FDA-Public Use
  Company Number: JP-JNJFOC-20100704794

PATIENT
  Sex: Female

DRUGS (13)
  1. CRAVIT [Suspect]
     Indication: URINARY TRACT INFECTION
     Route: 048
  2. CRAVIT [Suspect]
     Indication: CYSTITIS
     Route: 048
  3. LOXONIN [Suspect]
     Indication: ARTHRITIS
     Dosage: AS NEEDED
     Route: 048
  4. DOXAZOSIN MESYLATE [Concomitant]
     Indication: HYPERTENSION
     Route: 048
  5. ACINON [Concomitant]
     Indication: PRODUCT USED FOR UNKNOWN INDICATION
     Route: 048
  6. ARICEPT [Concomitant]
     Indication: DEMENTIA
     Route: 048
  7. DIOVAN [Concomitant]
     Indication: HYPERTENSION
     Route: 048
  8. NIVADIL [Concomitant]
     Indication: HYPERTENSION
     Route: 048
  9. ATELEC [Concomitant]
     Indication: HYPERTENSION
     Route: 048
  10. GASMOTIN [Concomitant]
     Indication: GASTRITIS
     Route: 048
  11. TANATRIL [Concomitant]
     Indication: HYPERTENSION
     Route: 048
  12. WARFARIN SODIUM [Concomitant]
     Indication: HYPERTENSION
     Route: 048
  13. SYMMETREL [Concomitant]
     Indication: PARKINSONISM
     Route: 048

REACTIONS (6)
  - ARTHRALGIA [None]
  - CONVULSION [None]
  - HYPOKINESIA [None]
  - LOSS OF CONSCIOUSNESS [None]
  - SINUS TACHYCARDIA [None]
  - SUPRAVENTRICULAR EXTRASYSTOLES [None]
